FAERS Safety Report 5132085-1 (Version None)
Quarter: 2006Q4

REPORT INFORMATION
  Report Type: 
  Country: None (occurrence: None)
  Receive Date: 20061017
  Receipt Date: 20061002
  Transmission Date: 20070319
  Serious: Yes (Hospitalization)
  Sender: FDA-Public Use
  Company Number: E3810-00322-CLI-US

PATIENT
  Age: 55 Year
  Sex: Male
  Weight: 61 kg

DRUGS (4)
  1. E3810 (RABEPRAZOLE) [Suspect]
     Indication: DYSPEPSIA
     Dosage: 10 MG, 1 IN 1 D, ORAL
     Route: 048
     Dates: start: 20060717
  2. INSULIN LANTUS (INSULIN) [Concomitant]
  3. INSULIN HUMULIN R (INSULIN) [Concomitant]
  4. ACETAMINOPHEN [Concomitant]

REACTIONS (4)
  - CYSTITIS [None]
  - KIDNEY INFECTION [None]
  - SYNCOPE [None]
  - URINARY TRACT INFECTION [None]
